FAERS Safety Report 15222371 (Version 3)
Quarter: 2018Q3

REPORT INFORMATION
  Report Type: Report from Study
  Country: FR (occurrence: FR)
  Receive Date: 20180731
  Receipt Date: 20180812
  Transmission Date: 20181010
  Serious: Yes (Other)
  Sender: FDA-Public Use
  Company Number: FR-TEVA-2018-FR-932585

PATIENT
  Age: 49 Year
  Sex: Female
  Weight: 77 kg

DRUGS (5)
  1. FLUOROURACIL. [Suspect]
     Active Substance: FLUOROURACIL
     Route: 065
     Dates: start: 20160531, end: 20160823
  2. DACARBAZINE. [Suspect]
     Active Substance: DACARBAZINE
     Route: 065
     Dates: start: 20160906
  3. PYOSTACINE [Concomitant]
     Active Substance: PRISTINAMYCIN
     Indication: ANTIBIOTIC THERAPY
     Route: 048
     Dates: start: 20171110
  4. STREPTOZOCIN [Suspect]
     Active Substance: STREPTOZOCIN
     Indication: PANCREATIC NEUROENDOCRINE TUMOUR
     Dosage: UNK
     Route: 065
     Dates: start: 20160531, end: 20160823
  5. FLUOROURACIL. [Suspect]
     Active Substance: FLUOROURACIL
     Indication: PANCREATIC NEUROENDOCRINE TUMOUR
     Dosage: UNK
     Route: 065
     Dates: start: 20160906

REACTIONS (8)
  - Diarrhoea [Recovered/Resolved]
  - Diarrhoea [Unknown]
  - Abscess neck [Recovered/Resolved]
  - Asthenia [Recovered/Resolved]
  - Proteinuria [Recovered/Resolved]
  - Amnesia [Unknown]
  - Device related thrombosis [Recovered/Resolved]
  - Vomiting [Recovered/Resolved]

NARRATIVE: CASE EVENT DATE: 201606
